FAERS Safety Report 24095719 (Version 1)
Quarter: 2024Q3

REPORT INFORMATION
  Report Type: Spontaneous
  Country: US (occurrence: US)
  Receive Date: 20240716
  Receipt Date: 20240716
  Transmission Date: 20241016
  Serious: No
  Sender: BIOGEN
  Company Number: US-BIOGEN-2024BI01273493

PATIENT
  Age: 48 Year
  Sex: Female

DRUGS (1)
  1. TYSABRI [Suspect]
     Active Substance: NATALIZUMAB
     Indication: Relapsing multiple sclerosis
     Dosage: STANDARD INTERVAL DOSING
     Route: 050
     Dates: start: 201505

REACTIONS (1)
  - Herpes virus infection [Unknown]

NARRATIVE: CASE EVENT DATE: 20240709
